FAERS Safety Report 8345004-1 (Version None)
Quarter: 2012Q2

REPORT INFORMATION
  Report Type: 
  Country: None (occurrence: None)
  Receive Date: 20120508
  Receipt Date: 20120504
  Transmission Date: 20120825
  Serious: Yes (Hospitalization)
  Sender: FDA-Public Use
  Company Number: IT-EISAI INC-E2020-10742-SPO-IT

PATIENT
  Sex: Male

DRUGS (5)
  1. AZILECT [Suspect]
     Route: 048
     Dates: start: 20110328, end: 20120327
  2. MEMANTINE HYDROCHLORIDE [Suspect]
     Route: 048
     Dates: start: 20110328, end: 20120327
  3. MADOPAR [Suspect]
     Route: 048
     Dates: start: 20110328, end: 20120327
  4. NEUPRO [Suspect]
     Route: 062
     Dates: start: 20110328, end: 20120327
  5. DONEPEZIL HCL [Suspect]
     Route: 048
     Dates: start: 20110328, end: 20120327

REACTIONS (1)
  - SOPOR [None]
